FAERS Safety Report 18711734 (Version 1)
Quarter: 2021Q1

REPORT INFORMATION
  Report Type: Spontaneous
  Country: CA (occurrence: CA)
  Receive Date: 20210107
  Receipt Date: 20210107
  Transmission Date: 20210419
  Serious: Yes (Hospitalization)
  Sender: FDA-Public Use
  Company Number: CA-TEVA-2020-CA-1864675

PATIENT
  Age: 59 Year
  Sex: Male
  Weight: 78 kg

DRUGS (27)
  1. DIMENHYDRINATE. [Concomitant]
     Active Substance: DIMENHYDRINATE
  2. MELPHALAN. [Suspect]
     Active Substance: MELPHALAN
     Indication: NON-HODGKIN^S LYMPHOMA
     Route: 065
  3. DILAUDID [Concomitant]
     Active Substance: HYDROMORPHONE HYDROCHLORIDE
  4. EMEND [Concomitant]
     Active Substance: APREPITANT
  5. OLANZAPINE. [Concomitant]
     Active Substance: OLANZAPINE
  6. PANTOPRAZOLE [Concomitant]
     Active Substance: PANTOPRAZOLE
  7. CYTARABINE INJECTION [Suspect]
     Active Substance: CYTARABINE
     Indication: NON-HODGKIN^S LYMPHOMA
     Route: 065
  8. ACYCLOVIR. [Concomitant]
     Active Substance: ACYCLOVIR
  9. FUROSEMIDE. [Concomitant]
     Active Substance: FUROSEMIDE
  10. LORAZEPAM. [Concomitant]
     Active Substance: LORAZEPAM
  11. LAX?A?DAY [Concomitant]
     Active Substance: POLYETHYLENE GLYCOL 3350
  12. ONDANSETRON [Concomitant]
     Active Substance: ONDANSETRON
  13. TRIMETHOPRIM?SULFAMETHOXAZOLE [Concomitant]
     Active Substance: SULFAMETHOXAZOLE\TRIMETHOPRIM
  14. ETOPOSIDE. [Suspect]
     Active Substance: ETOPOSIDE
     Indication: NON-HODGKIN^S LYMPHOMA
     Route: 065
  15. CARMUSTINE. [Suspect]
     Active Substance: CARMUSTINE
     Indication: NON-HODGKIN^S LYMPHOMA
     Route: 065
  16. FLUCONAZOLE. [Concomitant]
     Active Substance: FLUCONAZOLE
  17. METOCLOPRAMIDE. [Concomitant]
     Active Substance: METOCLOPRAMIDE
  18. SENNOSIDES. [Concomitant]
     Active Substance: SENNOSIDES
  19. VANCOMYCIN [Concomitant]
     Active Substance: VANCOMYCIN
  20. DEXAMETHASONE. [Concomitant]
     Active Substance: DEXAMETHASONE
     Route: 065
  21. ENOXAPARIN [Concomitant]
     Active Substance: ENOXAPARIN
  22. MEROPENEM. [Concomitant]
     Active Substance: MEROPENEM
  23. DIPHENHYDRAMINE. [Concomitant]
     Active Substance: DIPHENHYDRAMINE
  24. DEXILANT [Concomitant]
     Active Substance: DEXLANSOPRAZOLE
  25. DOCUSATE [Concomitant]
     Active Substance: DOCUSATE
  26. FILGRASTIM [Concomitant]
     Active Substance: FILGRASTIM
  27. VALACYCLOVIR [Concomitant]
     Active Substance: VALACYCLOVIR HYDROCHLORIDE

REACTIONS (2)
  - Streptococcal bacteraemia [Recovered/Resolved]
  - Febrile neutropenia [Recovered/Resolved]
